FAERS Safety Report 8700078 (Version 4)
Quarter: 2012Q4

REPORT INFORMATION
  Report Type: 
  Country: JP (occurrence: JP)
  Receive Date: 20120802
  Receipt Date: 20121003
  Transmission Date: 20130627
  Serious: Yes (Death)
  Sender: FDA-Public Use
  Company Number: JP-BAXTER-2012BAX012891

PATIENT
  Age: 80 Year
  Sex: Male
  Weight: 67.4 kg

DRUGS (4)
  1. FEIBA [Suspect]
     Indication: DRUG USE FOR UNKNOWN INDICATION
     Route: 042
     Dates: start: 20120724, end: 20120724
  2. PREDNISOLONE [Concomitant]
     Indication: DRUG USE FOR UNKNOWN INDICATION
     Route: 048
     Dates: start: 20120724, end: 20120724
  3. CATABON [Concomitant]
     Indication: DRUG USE FOR UNKNOWN INDICATION
     Route: 042
     Dates: start: 20120715, end: 20120724
  4. SULPERAZON [Concomitant]
     Indication: DRUG USE FOR UNKNOWN INDICATION
     Route: 042
     Dates: start: 20120724, end: 20120724

REACTIONS (5)
  - Respiratory arrest [Fatal]
  - Blood pressure decreased [Fatal]
  - Disseminated intravascular coagulation [Fatal]
  - Shock haemorrhagic [Fatal]
  - Multi-organ failure [Fatal]
